FAERS Safety Report 24943641 (Version 2)
Quarter: 2025Q1

REPORT INFORMATION
  Report Type: Spontaneous
  Country: JP (occurrence: JP)
  Receive Date: 20250207
  Receipt Date: 20250228
  Transmission Date: 20250408
  Serious: Yes (Other)
  Sender: SANDOZ
  Company Number: JP-002147023-NVSJ2025JP001611

PATIENT
  Age: 87 Year
  Sex: Female

DRUGS (6)
  1. EXELON [Suspect]
     Active Substance: RIVASTIGMINE TARTRATE
     Indication: Dementia Alzheimer^s type
     Dosage: PATCH10(CM2), QD
     Route: 062
  2. EXELON [Suspect]
     Active Substance: RIVASTIGMINE TARTRATE
     Route: 062
     Dates: start: 20230501, end: 20230910
  3. ENTRESTO [Concomitant]
     Active Substance: SACUBITRIL\VALSARTAN
     Indication: Hypertension
     Route: 065
     Dates: start: 20241214
  4. Memantine hydrochloride od [Concomitant]
     Route: 048
     Dates: start: 20230911
  5. Memantine hydrochloride od [Concomitant]
     Indication: Dementia Alzheimer^s type
     Route: 048
     Dates: start: 20230910
  6. HERBALS [Concomitant]
     Active Substance: HERBALS
     Indication: Insomnia
     Route: 048

REACTIONS (2)
  - Dementia Alzheimer^s type [Not Recovered/Not Resolved]
  - Condition aggravated [Not Recovered/Not Resolved]

NARRATIVE: CASE EVENT DATE: 20250201
